FAERS Safety Report 15857541 (Version 1)
Quarter: 2019Q1

REPORT INFORMATION
  Report Type: Spontaneous
  Country: US (occurrence: US)
  Receive Date: 20190123
  Receipt Date: 20190123
  Transmission Date: 20190417
  Serious: No
  Sender: FDA-Public Use
  Company Number: US-009507513-1901USA007871

PATIENT
  Sex: Male

DRUGS (14)
  1. INSULIN [Concomitant]
     Active Substance: INSULIN NOS
  2. SPIRONOLACTONE. [Concomitant]
     Active Substance: SPIRONOLACTONE
  3. DONEPEZIL. [Concomitant]
     Active Substance: DONEPEZIL
  4. ASPIRIN. [Concomitant]
     Active Substance: ASPIRIN
  5. ISOSORBIDE. [Concomitant]
     Active Substance: ISOSORBIDE
  6. POTASSIUM (UNSPECIFIED) [Concomitant]
     Active Substance: POTASSIUM
  7. FUROSEMIDE. [Concomitant]
     Active Substance: FUROSEMIDE
  8. JANUVIA [Suspect]
     Active Substance: SITAGLIPTIN PHOSPHATE
     Indication: TYPE 2 DIABETES MELLITUS
     Dosage: 25 MG ONCE DAILY
     Route: 048
     Dates: start: 20181127
  9. LEVOTHYROXINE SODIUM. [Concomitant]
     Active Substance: LEVOTHYROXINE SODIUM
  10. GLIPIZIDE. [Concomitant]
     Active Substance: GLIPIZIDE
  11. OMEGA-3 MARINE TRIGLYCERIDES [Concomitant]
     Active Substance: FISH OIL
  12. SODIUM (UNSPECIFIED) [Concomitant]
  13. RANITIDINE. [Concomitant]
     Active Substance: RANITIDINE
  14. AMLODIPINE [Concomitant]
     Active Substance: AMLODIPINE BESYLATE

REACTIONS (1)
  - Pharyngeal neoplasm benign [Recovering/Resolving]

NARRATIVE: CASE EVENT DATE: 2018
